FAERS Safety Report 8160718-4 (Version None)
Quarter: 2012Q1

REPORT INFORMATION
  Report Type: 
  Country: None (occurrence: None)
  Receive Date: 20120223
  Receipt Date: 20120213
  Transmission Date: 20120608
  Serious: Yes (Other)
  Sender: FDA-Public Use
  Company Number: PHEH2012US003663

PATIENT
  Sex: Female

DRUGS (6)
  1. EFFIENT [Concomitant]
  2. SIMVASTATIN [Concomitant]
  3. SINGULAIR [Concomitant]
     Indication: ASTHMA
  4. ASPIRIN [Concomitant]
  5. GLEEVEC [Suspect]
     Dosage: 400 MG,DAILY
     Dates: start: 20070601
  6. METOPROLOL TARTRATE [Concomitant]

REACTIONS (8)
  - NIGHTMARE [None]
  - RENAL DISORDER [None]
  - SPLENOMEGALY [None]
  - DEPRESSION [None]
  - RASH [None]
  - MALAISE [None]
  - OEDEMA PERIPHERAL [None]
  - FEELING ABNORMAL [None]
